FAERS Safety Report 13803705 (Version 2)
Quarter: 2017Q3

REPORT INFORMATION
  Report Type: Report from Study
  Country: BR (occurrence: BR)
  Receive Date: 20170728
  Receipt Date: 20170814
  Transmission Date: 20171127
  Serious: Yes (Hospitalization, Other)
  Sender: FDA-Public Use
  Company Number: BR-BIOGEN-2017BI00395290

PATIENT
  Sex: Female

DRUGS (6)
  1. CARBAMAZEPINE. [Concomitant]
     Active Substance: CARBAMAZEPINE
     Indication: SEIZURE
     Dosage: 2 TABLETS THRICE A DAY (AT MORNING/AFTERNOON AND EVENING)
     Route: 048
  2. OMEPRAZOLE. [Concomitant]
     Active Substance: OMEPRAZOLE
     Indication: PRODUCT USED FOR UNKNOWN INDICATION
     Dosage: 2 CAPSULES
     Route: 048
  3. AVONEX [Suspect]
     Active Substance: INTERFERON BETA-1A
     Indication: MULTIPLE SCLEROSIS
     Route: 030
  4. TYSABRI [Suspect]
     Active Substance: NATALIZUMAB
     Indication: MULTIPLE SCLEROSIS
     Route: 042
     Dates: start: 20130901
  5. BACLOFEN. [Concomitant]
     Active Substance: BACLOFEN
     Indication: GAIT DISTURBANCE
     Route: 065
  6. FLUOXETINE [Concomitant]
     Active Substance: FLUOXETINE HYDROCHLORIDE
     Indication: PRODUCT USED FOR UNKNOWN INDICATION
     Dosage: 2 TABLETS
     Route: 048

REACTIONS (8)
  - Fall [Recovered/Resolved]
  - Femur fracture [Recovered/Resolved with Sequelae]
  - Seizure [Recovered/Resolved]
  - Dizziness [Unknown]
  - Mental disorder [Unknown]
  - Osteoporosis [Not Recovered/Not Resolved]
  - Paraplegia [Not Recovered/Not Resolved]
  - Peripheral swelling [Unknown]
